FAERS Safety Report 26058472 (Version 1)
Quarter: 2025Q4

REPORT INFORMATION
  Report Type: Spontaneous
  Country: EU (occurrence: EU)
  Receive Date: 20251118
  Receipt Date: 20251118
  Transmission Date: 20260118
  Serious: Yes (Other)
  Sender: RANBAXY
  Company Number: EU-SUN PHARMACEUTICAL INDUSTRIES INC-2025R1-536782

PATIENT
  Age: 61 Year

DRUGS (4)
  1. PREDNISONE [Suspect]
     Active Substance: PREDNISONE
     Indication: Myasthenia gravis
     Dosage: UNK
     Route: 065
  2. AZATHIOPRINE [Suspect]
     Active Substance: AZATHIOPRINE
     Indication: Myasthenia gravis
     Dosage: UNK
     Route: 065
  3. NEOSTIGMINE [Suspect]
     Active Substance: NEOSTIGMINE
     Indication: Myasthenia gravis
     Dosage: UNK
     Route: 065
  4. Immunoglobulin [Concomitant]
     Indication: Myasthenia gravis
     Dosage: UNK
     Route: 042

REACTIONS (1)
  - Condition aggravated [Unknown]
